FAERS Safety Report 4464231-7 (Version None)
Quarter: 2004Q4

REPORT INFORMATION
  Report Type: 
  Country: None (occurrence: None)
  Receive Date: 20041001
  Receipt Date: 20040921
  Transmission Date: 20050328
  Serious: Yes (Hospitalization)
  Sender: FDA-Public Use
  Company Number: AU-GLAXOSMITHKLINE-B0346671A

PATIENT
  Age: 59 Year
  Sex: Male

DRUGS (1)
  1. ZYBAN [Suspect]
     Dates: start: 20040821

REACTIONS (5)
  - CIRCULATORY COLLAPSE [None]
  - DEHYDRATION [None]
  - FATIGUE [None]
  - FEELING ABNORMAL [None]
  - SYNCOPE [None]
